FAERS Safety Report 7428505-X (Version None)
Quarter: 2011Q2

REPORT INFORMATION
  Report Type: 
  Country: None (occurrence: None)
  Receive Date: 20110421
  Receipt Date: 20110411
  Transmission Date: 20111010
  Serious: Yes (Other)
  Sender: FDA-Public Use
  Company Number: PHHY2010DE17478

PATIENT
  Age: 57 Year
  Sex: Male

DRUGS (4)
  1. LEPONEX [Suspect]
     Dosage: 100 MG, UNK
     Route: 048
  2. LEPONEX [Suspect]
     Dosage: UNK
  3. LEPONEX [Suspect]
     Dosage: 275 MG/DAY
     Route: 048
  4. DIAZEPAM [Concomitant]
     Dosage: 1 TABLET TO NIGHT
     Route: 048

REACTIONS (5)
  - COAGULOPATHY [None]
  - DEPRESSION [None]
  - HAEMOGLOBIN DECREASED [None]
  - HYPERHOMOCYSTEINAEMIA [None]
  - CARCINOEMBRYONIC ANTIGEN INCREASED [None]
